FAERS Safety Report 14277902 (Version 1)
Quarter: 2017Q4

REPORT INFORMATION
  Report Type: Spontaneous
  Country: US (occurrence: US)
  Receive Date: 20171211
  Receipt Date: 20171211
  Transmission Date: 20180321
  Serious: Yes (Other)
  Sender: FDA-Public Use
  Company Number: US-OTSUKA-DJ20121360

PATIENT

DRUGS (8)
  1. ABILIFY [Suspect]
     Active Substance: ARIPIPRAZOLE
     Indication: MOOD SWINGS
     Route: 065
  2. LITHIUM. [Suspect]
     Active Substance: LITHIUM
     Indication: MOOD SWINGS
     Route: 065
  3. SERTRALINE HCL [Suspect]
     Active Substance: SERTRALINE HYDROCHLORIDE
     Indication: BIPOLAR DISORDER
     Route: 065
  4. TRAMADOL. [Suspect]
     Active Substance: TRAMADOL
     Route: 065
  5. LITHIUM. [Suspect]
     Active Substance: LITHIUM
     Indication: MOOD SWINGS
     Dosage: 900 MG, QD
  6. ASPIRIN. [Concomitant]
     Active Substance: ASPIRIN
     Route: 065
  7. LEVOTHYROXINE. [Concomitant]
     Active Substance: LEVOTHYROXINE
     Indication: THYROID DISORDER
     Route: 065
  8. ASPIRIN. [Concomitant]
     Active Substance: ASPIRIN
     Dosage: 325 MG, QD

REACTIONS (6)
  - Weight increased [Not Recovered/Not Resolved]
  - Depression [Unknown]
  - Suicidal ideation [Unknown]
  - Cerebrovascular accident [Recovered/Resolved]
  - Blood pressure increased [Unknown]
  - Insomnia [Unknown]

NARRATIVE: CASE EVENT DATE: 20110509
